FAERS Safety Report 4646067-7 (Version None)
Quarter: 2005Q2

REPORT INFORMATION
  Report Type: 
  Country: None (occurrence: None)
  Receive Date: 20050427
  Receipt Date: 20031210
  Transmission Date: 20051028
  Serious: No
  Sender: FDA-Public Use
  Company Number: US-GLAXOSMITHKLINE-A0442611A

PATIENT
  Age: 14 Year
  Sex: Female

DRUGS (8)
  1. ZOFRAN [Suspect]
     Indication: PROPHYLAXIS OF NAUSEA AND VOMITING
     Route: 042
     Dates: start: 20031120, end: 20031125
  2. SODIUM BICARBONATE [Suspect]
     Route: 042
  3. METHOTREXATE [Concomitant]
  4. LEUCOVORIN CALCIUM [Concomitant]
  5. VINCRISTINE [Concomitant]
  6. PREDNISONE [Concomitant]
  7. DOXORUBICIN HCL [Concomitant]
  8. CYTOXAN [Concomitant]

REACTIONS (4)
  - DRUG INEFFECTIVE [None]
  - HEADACHE [None]
  - NAUSEA [None]
  - VOMITING [None]
